FAERS Safety Report 23226694 (Version 1)
Quarter: 2023Q4

REPORT INFORMATION
  Report Type: Spontaneous
  Country: GB (occurrence: GB)
  Receive Date: 20231124
  Receipt Date: 20231124
  Transmission Date: 20240109
  Serious: Yes (Other)
  Sender: FDA-Public Use
  Company Number: GB-SUN PHARMACEUTICAL INDUSTRIES LTD-2023RR-419809

PATIENT
  Sex: Female

DRUGS (4)
  1. CITALOPRAM [Suspect]
     Active Substance: CITALOPRAM HYDROBROMIDE
     Indication: Adverse drug reaction
     Dosage: 20 MILLIGRAM, QD
     Route: 065
  2. CETIRIZINE [Concomitant]
     Active Substance: CETIRIZINE HYDROCHLORIDE
     Indication: Product used for unknown indication
     Dosage: UNK
     Route: 065
     Dates: start: 2021
  3. LUFORBEC [Concomitant]
     Indication: Asthma
     Dosage: UNK
     Route: 065
  4. Omeprazole Zentiva Pharma [Concomitant]
     Indication: Adverse drug reaction
     Dosage: UNK
     Route: 065
     Dates: start: 2015

REACTIONS (1)
  - Extrasystoles [Not Recovered/Not Resolved]
